FAERS Safety Report 5716063-7 (Version None)
Quarter: 2008Q2

REPORT INFORMATION
  Report Type: 
  Country: None (occurrence: None)
  Receive Date: 20080424
  Receipt Date: 20080414
  Transmission Date: 20081010
  Serious: Yes (Hospitalization)
  Sender: FDA-Public Use
  Company Number: FR-ABBOTT-08P-056-0447000-00

PATIENT
  Sex: Male

DRUGS (1)
  1. DEPAKENE [Suspect]
     Indication: GRAND MAL CONVULSION
     Route: 048
     Dates: start: 20071201, end: 20080125

REACTIONS (2)
  - LUNG INFILTRATION [None]
  - PULMONARY HAEMORRHAGE [None]
